FAERS Safety Report 21321146 (Version 4)
Quarter: 2023Q2

REPORT INFORMATION
  Report Type: Report from Study
  Country: JP (occurrence: JP)
  Receive Date: 20220912
  Receipt Date: 20230502
  Transmission Date: 20230722
  Serious: Yes (Other)
  Sender: FDA-Public Use
  Company Number: JP-ASTELLAS-2022JP006085

PATIENT
  Age: 86 Year
  Sex: Male
  Weight: 60 kg

DRUGS (10)
  1. ENFORTUMAB VEDOTIN [Suspect]
     Active Substance: ENFORTUMAB VEDOTIN
     Indication: Transitional cell carcinoma
     Dosage: 1 MG/KG, ONCE WEEKLY FOR 3 CONSECUTIVE WEEKS, INTERRUPTED IN THE 4TH WEEK
     Route: 041
     Dates: start: 20220317, end: 20220428
  2. ENFORTUMAB VEDOTIN [Suspect]
     Active Substance: ENFORTUMAB VEDOTIN
     Dosage: 1 MG/KG, ONCE WEEKLY FOR 3 CONSECUTIVE WEEKS, INTERRUPTED IN THE 4TH WEEK
     Route: 041
     Dates: start: 20220518, end: 20220603
  3. ENFORTUMAB VEDOTIN [Suspect]
     Active Substance: ENFORTUMAB VEDOTIN
     Dosage: 1 MG/KG, ONCE WEEKLY FOR 3 CONSECUTIVE WEEKS, INTERRUPTED IN THE 4TH WEEK
     Route: 041
     Dates: start: 20220622, end: 20220706
  4. ENFORTUMAB VEDOTIN [Suspect]
     Active Substance: ENFORTUMAB VEDOTIN
     Dosage: 1 MG/KG, ONCE WEEKLY FOR 3 CONSECUTIVE WEEKS, INTERRUPTED IN THE 4TH WEEK
     Route: 041
     Dates: start: 20220727, end: 20220810
  5. ENFORTUMAB VEDOTIN [Suspect]
     Active Substance: ENFORTUMAB VEDOTIN
     Dosage: 1 MG/KG, ONCE WEEKLY FOR 3 CONSECUTIVE WEEKS, INTERRUPTED IN THE 4TH WEEK
     Route: 041
     Dates: start: 20221102, end: 20221214
  6. ENFORTUMAB VEDOTIN [Suspect]
     Active Substance: ENFORTUMAB VEDOTIN
     Dosage: 1 MG/KG, ONCE WEEKLY FOR 3 CONSECUTIVE WEEKS, INTERRUPTED IN THE 4TH WEEK
     Route: 041
     Dates: start: 20230111, end: 20230125
  7. ENFORTUMAB VEDOTIN [Suspect]
     Active Substance: ENFORTUMAB VEDOTIN
     Dosage: 1 MG/KG, ONCE WEEKLY FOR 3 CONSECUTIVE WEEKS, INTERRUPTED IN THE 4TH WEEK
     Route: 041
     Dates: start: 20230215, end: 20230301
  8. ENFORTUMAB VEDOTIN [Suspect]
     Active Substance: ENFORTUMAB VEDOTIN
     Dosage: 1 MG/KG, ONCE WEEKLY FOR 3 CONSECUTIVE WEEKS, INTERRUPTED IN THE 4TH WEEK
     Route: 041
     Dates: start: 20230322
  9. FEXOFENADINE HYDROCHLORIDE [Concomitant]
     Active Substance: FEXOFENADINE HYDROCHLORIDE
     Indication: Pruritus
     Dosage: UNK UNK, UNKNOWN FREQ.
     Route: 065
  10. EURAX [Concomitant]
     Active Substance: CROTAMITON
     Indication: Pruritus
     Dosage: UNK, UNK, UNKNOWN FREQ.
     Route: 065

REACTIONS (4)
  - Dermatitis [Not Recovered/Not Resolved]
  - Pruritus [Recovering/Resolving]
  - Hydronephrosis [Recovered/Resolved]
  - Blood creatinine increased [Recovered/Resolved]

NARRATIVE: CASE EVENT DATE: 20220420
